FAERS Safety Report 15657572 (Version 4)
Quarter: 2019Q2

REPORT INFORMATION
  Report Type: Report from Study
  Country: FR (occurrence: FR)
  Receive Date: 20181126
  Receipt Date: 20190612
  Transmission Date: 20190711
  Serious: Yes (Death)
  Sender: FDA-Public Use
  Company Number: FR-JNJFOC-20181129465

PATIENT
  Sex: Male
  Weight: 90 kg

DRUGS (7)
  1. PREDNISONE. [Suspect]
     Active Substance: PREDNISONE
     Indication: PROSTATE CANCER METASTATIC
     Dosage: CUMULATIVE DOSE TO FIRST ADMINISTRATION WAS 3440 MG
     Route: 048
     Dates: start: 20171025
  2. LERCAN [Concomitant]
     Active Substance: LERCANIDIPINE
     Indication: HYPERTENSION
     Route: 048
     Dates: start: 20181005
  3. ZYTIGA [Suspect]
     Active Substance: ABIRATERONE ACETATE
     Indication: PROSTATE CANCER METASTATIC
     Dosage: CUMULATIVE DOSE TO FIRST ADMINISTRATION WAS 344 GM
     Route: 048
     Dates: start: 20171025
  4. TAXOTERE [Suspect]
     Active Substance: DOCETAXEL
     Indication: PROSTATE CANCER METASTATIC
     Dosage: CUMULATIVE DOSE TO FIRST ADMINISTRATION WAS 908 MG
     Route: 042
     Dates: start: 20171026
  5. BICALUTAMIDE. [Suspect]
     Active Substance: BICALUTAMIDE
     Indication: PROSTATE CANCER METASTATIC
     Dosage: CUMULATIVE DOSE TO FIRST ADMINISTRATION WAS 1500 MG
     Route: 048
     Dates: start: 20170825
  6. COSIMPREL [Concomitant]
     Indication: HYPERTENSION
     Route: 048
     Dates: start: 2017
  7. DECAPEPTYL (GONADORELIN) [Suspect]
     Active Substance: GONADORELIN
     Indication: PROSTATE CANCER METASTATIC
     Dosage: CUMULATIVE DOSE TO FIRST ADMINISTRATION WAS 90 MG
     Route: 058
     Dates: start: 20170905

REACTIONS (1)
  - Sudden death [Fatal]
